FAERS Safety Report 4289712-0 (Version None)
Quarter: 2004Q1

REPORT INFORMATION
  Report Type: 
  Country: None (occurrence: None)
  Receive Date: 20040126
  Receipt Date: 20030214
  Transmission Date: 20041129
  Serious: No
  Sender: FDA-Public Use
  Company Number: 02P-163-0203787-00

PATIENT
  Age: 50 Year
  Sex: Male

DRUGS (6)
  1. TERAZOSIN HYDROCHLORIDE (HYTRIN) (HYTRIN CAPSULES) (TERAZOSIN HYDROCHL [Suspect]
     Indication: DRUG INTERACTION
     Dosage: SEE IMAGE
     Route: 048
     Dates: start: 20021001, end: 20021003
  2. TERAZOSIN HYDROCHLORIDE (HYTRIN) (HYTRIN CAPSULES) (TERAZOSIN HYDROCHL [Suspect]
     Indication: DRUG INTERACTION
     Dosage: SEE IMAGE
     Route: 048
     Dates: start: 20021006, end: 20021006
  3. TERAZOSIN HYDROCHLORIDE (HYTRIN) (HYTRIN CAPSULES) (TERAZOSIN HYDROCHL [Suspect]
     Indication: DRUG INTERACTION
     Dosage: SEE IMAGE
     Route: 048
     Dates: start: 20021011, end: 20021020
  4. VARDENAFIL [Suspect]
     Indication: DRUG INTERACTION
     Dosage: 10 MG 1 IN 1 D, PER ORAL
     Route: 048
     Dates: start: 20021017, end: 20021017
  5. VARDENAFIL [Suspect]
     Indication: DRUG INTERACTION
     Dosage: 10 MG 1 IN 1 D, PER ORAL
     Route: 048
     Dates: start: 20021011, end: 20021020
  6. PLACEBO [Suspect]
     Indication: DRUG INTERACTION
     Dosage: PER ORAL
     Route: 048
     Dates: start: 20021019, end: 20021019

REACTIONS (2)
  - DIZZINESS [None]
  - ORTHOSTATIC HYPOTENSION [None]
